FAERS Safety Report 8513776-9 (Version None)
Quarter: 2012Q3

REPORT INFORMATION
  Report Type: 
  Country: None (occurrence: None)
  Receive Date: 20120705
  Receipt Date: 20120620
  Transmission Date: 20120928
  Serious: Yes (Hospitalization, Other)
  Sender: FDA-Public Use
  Company Number: 2012P1043037

PATIENT
  Sex: Female
  Weight: 63.5036 kg

DRUGS (6)
  1. WARFARIN SODIUM [Suspect]
     Indication: PULMONARY EMBOLISM
     Dosage: 7.5 MG;QD;PO
     Route: 048
     Dates: start: 20120616
  2. WARFARIN SODIUM [Suspect]
     Indication: PULMONARY EMBOLISM
     Dosage: 7.5 MG;QD;PO
     Route: 048
     Dates: start: 20000101, end: 20100101
  3. NATURE MADE VITAMIN B12 [Concomitant]
  4. OMEPRAZOLE MAGNESIUM [Concomitant]
  5. ALPRAZOLAM [Concomitant]
  6. SERTRALINE HYDROCHLORIDE [Concomitant]

REACTIONS (11)
  - HEADACHE [None]
  - GAIT DISTURBANCE [None]
  - CHEST DISCOMFORT [None]
  - ABASIA [None]
  - PRURITUS [None]
  - ABDOMINAL PAIN UPPER [None]
  - FORMICATION [None]
  - ASTHENIA [None]
  - DYSPNOEA [None]
  - FATIGUE [None]
  - THROAT IRRITATION [None]
